FAERS Safety Report 11781718 (Version 1)
Quarter: 2015Q4

REPORT INFORMATION
  Report Type: Spontaneous
  Country: JP (occurrence: JP)
  Receive Date: 20151126
  Receipt Date: 20151126
  Transmission Date: 20160305
  Serious: Yes (Other)
  Sender: FDA-Public Use
  Company Number: JP-PFIZER INC-2015391581

PATIENT
  Age: 77 Year
  Sex: Female
  Weight: 64.4 kg

DRUGS (3)
  1. LYRICA [Suspect]
     Active Substance: PREGABALIN
     Indication: POST HERPETIC NEURALGIA
     Dosage: UNK
     Route: 048
     Dates: start: 20150908, end: 20150928
  2. CALONAL [Suspect]
     Active Substance: ACETAMINOPHEN
     Indication: POST HERPETIC NEURALGIA
     Dosage: UNK
     Dates: start: 20150908, end: 20150928
  3. NEUROTROPIN [Suspect]
     Active Substance: NEUROTROPIN
     Indication: POST HERPETIC NEURALGIA
     Dosage: UNK
     Dates: start: 20150908, end: 20150928

REACTIONS (2)
  - Rash [Unknown]
  - Hepatic function abnormal [Unknown]
